FAERS Safety Report 24228459 (Version 2)
Quarter: 2024Q4

REPORT INFORMATION
  Report Type: Spontaneous
  Country: US (occurrence: US)
  Receive Date: 20240820
  Receipt Date: 20241212
  Transmission Date: 20250115
  Serious: No
  Sender: PFIZER
  Company Number: US-PFIZER INC-202400237039

PATIENT
  Age: 72 Year
  Sex: Female
  Weight: 56.689 kg

DRUGS (2)
  1. IBRANCE [Suspect]
     Active Substance: PALBOCICLIB
     Dosage: 125 MG, CYCLIC TAKE 1 TABLET FOR 21 DAYS ON 7 DAYS OFF
  2. IBRANCE [Suspect]
     Active Substance: PALBOCICLIB
     Dosage: CYCLIC (THREE WEEKS ON, ONE WEEK OFF)

REACTIONS (2)
  - Neoplasm recurrence [Unknown]
  - Malaise [Unknown]
